FAERS Safety Report 22169121 (Version 1)
Quarter: 2023Q2

REPORT INFORMATION
  Report Type: Spontaneous
  Country: US (occurrence: US)
  Receive Date: 20230404
  Receipt Date: 20230404
  Transmission Date: 20230722
  Serious: Yes (Other)
  Sender: FDA-Public Use
  Company Number: US-drreddys-SPO/USA/23/0163172

PATIENT
  Age: 58 Year
  Sex: Male

DRUGS (82)
  1. DIVALPROEX SODIUM [Suspect]
     Active Substance: DIVALPROEX SODIUM
     Indication: Delirium
     Dosage: ON DAY-08
  2. DIVALPROEX SODIUM [Suspect]
     Active Substance: DIVALPROEX SODIUM
     Dosage: FROM DAY-09 TO DAY-15
  3. DIVALPROEX SODIUM [Suspect]
     Active Substance: DIVALPROEX SODIUM
     Dosage: ON DAY-03
  4. DIVALPROEX SODIUM [Suspect]
     Active Substance: DIVALPROEX SODIUM
     Dosage: ON DAY-02
  5. DIVALPROEX SODIUM [Suspect]
     Active Substance: DIVALPROEX SODIUM
     Dosage: ON DAY-04
  6. DIVALPROEX SODIUM [Suspect]
     Active Substance: DIVALPROEX SODIUM
     Dosage: FROM DAY-05 TO DAY-07
  7. DIVALPROEX SODIUM [Suspect]
     Active Substance: DIVALPROEX SODIUM
     Dosage: TOTAL:1852MG (ON DAY-02)
  8. PHENOBARBITAL [Concomitant]
     Active Substance: PHENOBARBITAL
     Indication: Delirium
     Dosage: ON DAY-14
     Route: 048
  9. PHENOBARBITAL [Concomitant]
     Active Substance: PHENOBARBITAL
     Dosage: ON DAY-13
     Route: 048
  10. PHENOBARBITAL [Concomitant]
     Active Substance: PHENOBARBITAL
     Dosage: ON DAY-14
     Route: 030
  11. PHENOBARBITAL [Concomitant]
     Active Substance: PHENOBARBITAL
     Dosage: ON DAY-15 AND 16
     Route: 048
  12. PHENOBARBITAL [Concomitant]
     Active Substance: PHENOBARBITAL
     Dosage: ON DAY-13
     Route: 048
  13. PHENOBARBITAL [Concomitant]
     Active Substance: PHENOBARBITAL
     Dosage: ON DAY-14
     Route: 048
  14. PHENOBARBITAL [Concomitant]
     Active Substance: PHENOBARBITAL
     Dosage: ON DAY-14
     Route: 048
  15. CLONIDINE [Concomitant]
     Active Substance: CLONIDINE
     Indication: Delirium
     Dosage: ON DAY-14
     Route: 048
  16. CLONIDINE [Concomitant]
     Active Substance: CLONIDINE
     Dosage: ON DAY-13
     Route: 048
  17. CLONIDINE [Concomitant]
     Active Substance: CLONIDINE
     Dosage: ON DAY-13
     Route: 048
  18. CLONIDINE [Concomitant]
     Active Substance: CLONIDINE
     Dosage: ON DAY-14
     Route: 048
  19. CLONIDINE [Concomitant]
     Active Substance: CLONIDINE
     Dosage: ON DAY-15
     Route: 048
  20. CLONIDINE [Concomitant]
     Active Substance: CLONIDINE
     Dosage: ON DAY-14
     Route: 048
  21. DEXMEDETOMIDINE [Concomitant]
     Active Substance: DEXMEDETOMIDINE
     Indication: Delirium
     Dosage: TITRATED UP TO (ON DAY-01)
     Route: 042
  22. DEXMEDETOMIDINE [Concomitant]
     Active Substance: DEXMEDETOMIDINE
     Dosage: ON DAY-01
     Route: 042
  23. DEXMEDETOMIDINE [Concomitant]
     Active Substance: DEXMEDETOMIDINE
     Dosage: ON DAY-03
     Route: 042
  24. DEXMEDETOMIDINE [Concomitant]
     Active Substance: DEXMEDETOMIDINE
     Dosage: TITRATED UP TO (ON DAY-02)
     Route: 042
  25. DEXMEDETOMIDINE [Concomitant]
     Active Substance: DEXMEDETOMIDINE
     Dosage: TITRATED UP TO 0.4 MCG/KG/HR OFF BY 0730  (ON DAY-03)
     Route: 042
  26. ZIPRASIDONE [Concomitant]
     Active Substance: ZIPRASIDONE
     Indication: Delirium
     Dosage: ON DAY-07
  27. ZIPRASIDONE [Concomitant]
     Active Substance: ZIPRASIDONE
     Dosage: ON DAY-06
  28. HALOPERIDOL [Concomitant]
     Active Substance: HALOPERIDOL
     Indication: Delirium
     Dosage: ON DAY-01
  29. HALOPERIDOL [Concomitant]
     Active Substance: HALOPERIDOL
     Dosage: ON DAY-02
  30. HALOPERIDOL [Concomitant]
     Active Substance: HALOPERIDOL
     Dosage: ON DAY-02
  31. HALOPERIDOL [Concomitant]
     Active Substance: HALOPERIDOL
     Dosage: ON DAY-01
  32. ARIPIPRAZOLE [Concomitant]
     Active Substance: ARIPIPRAZOLE
     Indication: Delirium
     Dosage: ON DAY-04 AND DAY-05
  33. ARIPIPRAZOLE [Concomitant]
     Active Substance: ARIPIPRAZOLE
     Dosage: ON DAY-04 AND DAY-05
  34. ALPRAZOLAM [Concomitant]
     Active Substance: ALPRAZOLAM
     Indication: Delirium
     Dosage: ON DAY-09
  35. ALPRAZOLAM [Concomitant]
     Active Substance: ALPRAZOLAM
     Dosage: FROM DAY-10 TO DAY-12
  36. LORAZEPAM [Concomitant]
     Active Substance: LORAZEPAM
     Indication: Delirium
     Dosage: ON DAY-02 (SCHEDULED DOSING)
  37. LORAZEPAM [Concomitant]
     Active Substance: LORAZEPAM
     Dosage: ON DAY-03 (SCHEDULED DOSING)
  38. LORAZEPAM [Concomitant]
     Active Substance: LORAZEPAM
     Dosage: ON DAY-10 AND DAY-11 (PRN DOSING)
  39. LORAZEPAM [Concomitant]
     Active Substance: LORAZEPAM
     Dosage: 5 TIMES A DAY ON DAY-07 (PRN DOSING)
  40. LORAZEPAM [Concomitant]
     Active Substance: LORAZEPAM
     Dosage: ON DAY-12 (PRN DOSING)
  41. LORAZEPAM [Concomitant]
     Active Substance: LORAZEPAM
     Dosage: ON DAY-04 (SCHEDULED DOSING)
  42. LORAZEPAM [Concomitant]
     Active Substance: LORAZEPAM
     Dosage: ON DAY-01 (SCHEDULED DOSING)
  43. LORAZEPAM [Concomitant]
     Active Substance: LORAZEPAM
     Dosage: ON DAY-06 (PRN DOSING)
  44. LORAZEPAM [Concomitant]
     Active Substance: LORAZEPAM
     Dosage: ON DAY-05 (PRN DOSING)
  45. LORAZEPAM [Concomitant]
     Active Substance: LORAZEPAM
     Dosage: ON DAY-08 AND DAY-09 (PRN DOSING)
  46. KETAMINE [Concomitant]
     Active Substance: KETAMINE
     Indication: Delirium
     Dosage: TITRATED UP TO (DAY-07, WEANING PERIOD)
     Route: 042
  47. KETAMINE [Concomitant]
     Active Substance: KETAMINE
     Dosage: ON DAY-03 AND DAY-04
     Route: 042
  48. KETAMINE [Concomitant]
     Active Substance: KETAMINE
     Dosage: ON DAY-02
     Route: 042
  49. KETAMINE [Concomitant]
     Active Substance: KETAMINE
     Dosage: ON DAY-01
     Route: 042
  50. KETAMINE [Concomitant]
     Active Substance: KETAMINE
     Dosage: TITRATED UP TO (ON DAY-02)
     Route: 042
  51. KETAMINE [Concomitant]
     Active Substance: KETAMINE
     Dosage: TITRATED UP TO 0.125 MG/KG/HR (ON DAY-06, WEANING PERIOD)
     Route: 042
  52. KETAMINE [Concomitant]
     Active Substance: KETAMINE
     Dosage: ON DAY-01
     Route: 042
  53. KETAMINE [Concomitant]
     Active Substance: KETAMINE
     Dosage: ON DAY-02
     Route: 042
  54. KETAMINE [Concomitant]
     Active Substance: KETAMINE
     Dosage: ON DAY-02
     Route: 042
  55. KETAMINE [Concomitant]
     Active Substance: KETAMINE
     Dosage: DAY-08, WEANING PERIOD
     Route: 042
  56. KETAMINE [Concomitant]
     Active Substance: KETAMINE
     Dosage: TITRATED UP TO ON DAY-05 (WEANING PERIOD)
     Route: 042
  57. KETAMINE [Concomitant]
     Active Substance: KETAMINE
     Dosage: RESUME AT 0.125 MG/KG/HR FOR ~2.5 HOURS. ON DAY-09
     Route: 042
  58. QUETIAPINE FUMARATE [Concomitant]
     Active Substance: QUETIAPINE FUMARATE
     Indication: Delirium
     Dosage: ON DAY-12, 13
  59. QUETIAPINE FUMARATE [Concomitant]
     Active Substance: QUETIAPINE FUMARATE
     Dosage: ON DAY-08
  60. QUETIAPINE FUMARATE [Concomitant]
     Active Substance: QUETIAPINE FUMARATE
     Dosage: ON DAY-09
  61. QUETIAPINE FUMARATE [Concomitant]
     Active Substance: QUETIAPINE FUMARATE
     Dosage: ON DAY-14, 15
  62. QUETIAPINE FUMARATE [Concomitant]
     Active Substance: QUETIAPINE FUMARATE
     Dosage: ON DAY-11
  63. QUETIAPINE FUMARATE [Concomitant]
     Active Substance: QUETIAPINE FUMARATE
     Dosage: ON DAY-01
  64. QUETIAPINE FUMARATE [Concomitant]
     Active Substance: QUETIAPINE FUMARATE
     Dosage: ON DAY-07 AND DAY-10
  65. QUETIAPINE FUMARATE [Concomitant]
     Active Substance: QUETIAPINE FUMARATE
     Dosage: ON DAY-10
  66. QUETIAPINE FUMARATE [Concomitant]
     Active Substance: QUETIAPINE FUMARATE
     Dosage: ON DAY-03
  67. QUETIAPINE FUMARATE [Concomitant]
     Active Substance: QUETIAPINE FUMARATE
     Dosage: ON DAY-11
  68. QUETIAPINE FUMARATE [Concomitant]
     Active Substance: QUETIAPINE FUMARATE
     Dosage: ON DAY-02
  69. GABAPENTIN [Concomitant]
     Active Substance: GABAPENTIN
     Indication: Neuralgia
     Dosage: ON DAY-02
  70. GABAPENTIN [Concomitant]
     Active Substance: GABAPENTIN
     Dosage: FROM DAY-09 TO DAY-13
  71. GABAPENTIN [Concomitant]
     Active Substance: GABAPENTIN
     Dosage: ON DAY-04
  72. GABAPENTIN [Concomitant]
     Active Substance: GABAPENTIN
     Dosage: ON DAY-03
  73. GABAPENTIN [Concomitant]
     Active Substance: GABAPENTIN
     Dosage: ON DAY-04
  74. GABAPENTIN [Concomitant]
     Active Substance: GABAPENTIN
     Dosage: FROM DAY-05 TO DAY-08
  75. GABAPENTIN [Concomitant]
     Active Substance: GABAPENTIN
     Dosage: ON DAY-02
  76. GABAPENTIN [Concomitant]
     Active Substance: GABAPENTIN
     Dosage: ON DAY-14
  77. GABAPENTIN [Concomitant]
     Active Substance: GABAPENTIN
     Dosage: ON DAY-15
  78. GABAPENTIN [Concomitant]
     Active Substance: GABAPENTIN
     Dosage: ON DAY-01
  79. MIDAZOLAM [Concomitant]
     Active Substance: MIDAZOLAM
     Indication: Delirium
     Dosage: ON DAY-4
  80. MIDAZOLAM [Concomitant]
     Active Substance: MIDAZOLAM
     Dosage: 7 TIMES A DAY (ON DAY-01)
  81. MIDAZOLAM [Concomitant]
     Active Substance: MIDAZOLAM
     Dosage: ON DAY-01
  82. MIDAZOLAM [Concomitant]
     Active Substance: MIDAZOLAM
     Dosage: ON DAY-02

REACTIONS (3)
  - Hypertransaminasaemia [Unknown]
  - Hyperammonaemia [Unknown]
  - Product use in unapproved indication [Unknown]
